FAERS Safety Report 6599710-X (Version None)
Quarter: 2010Q1

REPORT INFORMATION
  Report Type: 
  Country: None (occurrence: None)
  Receive Date: 20100224
  Receipt Date: 20100219
  Transmission Date: 20100710
  Serious: Yes (Other)
  Sender: FDA-Public Use
  Company Number: CA-JNJCH-2010004102

PATIENT
  Age: 77 Year
  Sex: Female

DRUGS (1)
  1. ROLAIDS [Suspect]
     Indication: DYSPEPSIA
     Dosage: TEXT:THREE TABLETS TWICE DAILY
     Route: 048
     Dates: start: 20091002, end: 20100104

REACTIONS (1)
  - NAUSEA [None]
